FAERS Safety Report 4966897-1 (Version None)
Quarter: 2006Q2

REPORT INFORMATION
  Report Type: 
  Country: None (occurrence: None)
  Receive Date: 20060407
  Receipt Date: 20060329
  Transmission Date: 20061013
  Serious: Yes (Hospitalization, Other)
  Sender: FDA-Public Use
  Company Number: US-MERCK-0603USA04486

PATIENT
  Sex: Female

DRUGS (6)
  1. VIOXX [Suspect]
     Indication: ARTHRITIS
     Route: 048
     Dates: start: 20020101, end: 20040101
  2. VIOXX [Suspect]
     Indication: PAIN
     Route: 048
     Dates: start: 20020101, end: 20040101
  3. PERCOCET [Concomitant]
     Route: 065
  4. PROTONIX [Concomitant]
     Route: 065
  5. REGLAN [Concomitant]
     Route: 065
  6. BUSPAR [Concomitant]
     Route: 065

REACTIONS (8)
  - ADVERSE DRUG REACTION [None]
  - ADVERSE EVENT [None]
  - CONVULSION [None]
  - DIZZINESS [None]
  - HAEMORRHAGE [None]
  - LIVER DISORDER [None]
  - LOSS OF CONSCIOUSNESS [None]
  - RENAL DISORDER [None]
